FAERS Safety Report 12752362 (Version 1)
Quarter: 2016Q3

REPORT INFORMATION
  Report Type: Report from Study
  Country: BR (occurrence: BR)
  Receive Date: 20160915
  Receipt Date: 20160915
  Transmission Date: 20161109
  Serious: Yes (Death, Hospitalization)
  Sender: FDA-Public Use
  Company Number: PHHY2016BR125394

PATIENT
  Age: 94 Year
  Sex: Female
  Weight: 44 kg

DRUGS (2)
  1. NEOTIAPIM [Suspect]
     Active Substance: QUETIAPINE
     Indication: DEMENTIA ALZHEIMER^S TYPE
     Dosage: 25 MG, QD
     Route: 048
  2. NEOTIAPIM [Suspect]
     Active Substance: QUETIAPINE
     Dosage: 25 MG, BID
     Route: 048

REACTIONS (2)
  - Pneumonia aspiration [Fatal]
  - Weight decreased [Unknown]

NARRATIVE: CASE EVENT DATE: 20160713
